FAERS Safety Report 23347173 (Version 1)
Quarter: 2023Q4

REPORT INFORMATION
  Report Type: Spontaneous
  Country: US (occurrence: None)
  Receive Date: 20231227
  Receipt Date: 20231227
  Transmission Date: 20240110
  Serious: No
  Sender: FDA-Public Use
  Company Number: None

PATIENT
  Sex: Female

DRUGS (3)
  1. TERIPARATIDE [Suspect]
     Active Substance: TERIPARATIDE
     Indication: Senile osteoporosis
     Dosage: 20 MCG DAILY UNDER THE SKIN
     Route: 058
     Dates: start: 202206
  2. TERIPARATIDE [Suspect]
     Active Substance: TERIPARATIDE
     Indication: Bone density abnormal
  3. TERIPARATIDE [Suspect]
     Active Substance: TERIPARATIDE
     Indication: Product used for unknown indication

REACTIONS (3)
  - Therapy cessation [None]
  - Vertebral lesion [None]
  - Magnetic resonance imaging abnormal [None]
